FAERS Safety Report 6618687-1 (Version None)
Quarter: 2010Q1

REPORT INFORMATION
  Report Type: 
  Country: None (occurrence: None)
  Receive Date: 20100308
  Receipt Date: 20100222
  Transmission Date: 20100710
  Serious: Yes (Disabling)
  Sender: FDA-Public Use
  Company Number: DE-ELI_LILLY_AND_COMPANY-DE201002004589

PATIENT
  Sex: Male
  Weight: 85 kg

DRUGS (11)
  1. EFFIENT [Suspect]
     Indication: PERCUTANEOUS CORONARY INTERVENTION
     Dosage: 10 MG, UNKNOWN
     Route: 048
     Dates: start: 20090426
  2. DELIX [Concomitant]
     Dosage: 2.5 MG (2X1)
     Route: 065
  3. SORTIS [Concomitant]
     Indication: HYPERCHOLESTEROLAEMIA
     Dosage: 20 MG (1/2)
     Route: 065
     Dates: end: 20100103
  4. NATRILIX [Concomitant]
     Dosage: UNK, UNKNOWN
     Route: 065
  5. ASPIRIN [Concomitant]
     Dosage: 100 MG, UNKNOWN
     Route: 065
  6. OXYGESIC [Concomitant]
     Dosage: 3X2
     Route: 065
  7. FOLSAURE [Concomitant]
     Dosage: 5 MG, UNKNOWN
     Route: 065
  8. OMACOR [Concomitant]
     Dosage: UNK, UNKNOWN
     Route: 065
  9. ALLOPURINOL [Concomitant]
     Dosage: 300 MG (1/2)
     Route: 065
  10. PANTOPRAZOL [Concomitant]
     Dosage: 20 MG, UNKNOWN
     Route: 065
  11. ATENOLOL [Concomitant]
     Dosage: 50 MG (2X 1/2)
     Route: 065

REACTIONS (3)
  - ABASIA [None]
  - HAEMATOMA [None]
  - MYALGIA [None]
